FAERS Safety Report 8034395-7 (Version None)
Quarter: 2012Q1

REPORT INFORMATION
  Report Type: 
  Country: None (occurrence: None)
  Receive Date: 20120110
  Receipt Date: 20120103
  Transmission Date: 20120608
  Serious: Yes (Death)
  Sender: FDA-Public Use
  Company Number: US-ACTELION-A-NJ2011-57848

PATIENT

DRUGS (1)
  1. TRACLEER [Suspect]
     Indication: PULMONARY ARTERIAL HYPERTENSION
     Dosage: UNK
     Route: 048
     Dates: start: 20111013, end: 20111127

REACTIONS (4)
  - HYPOXIA [None]
  - HYPOTENSION [None]
  - FLUID OVERLOAD [None]
  - PULMONARY ARTERIAL HYPERTENSION [None]
